FAERS Safety Report 6843773-0 (Version None)
Quarter: 2010Q3

REPORT INFORMATION
  Report Type: 
  Country: None (occurrence: None)
  Receive Date: 20100714
  Receipt Date: 20100714
  Transmission Date: 20110219
  Serious: Yes (Life-Threatening, Other)
  Sender: FDA-Public Use
  Company Number: None

PATIENT
  Sex: Female
  Weight: 80.7403 kg

DRUGS (4)
  1. NORVASC [Suspect]
  2. ALDOMET [Suspect]
  3. LABETALOL HCL [Suspect]
  4. HYDRALAZINE HCL [Suspect]

REACTIONS (7)
  - ABDOMINAL DISTENSION [None]
  - ANGIOEDEMA [None]
  - DIZZINESS [None]
  - DRUG INTOLERANCE [None]
  - NAUSEA [None]
  - TREMOR [None]
  - VISION BLURRED [None]
